FAERS Safety Report 25759785 (Version 1)
Quarter: 2025Q3

REPORT INFORMATION
  Report Type: Spontaneous
  Country: EU (occurrence: EU)
  Receive Date: 20250904
  Receipt Date: 20250904
  Transmission Date: 20251021
  Serious: Yes (Other)
  Sender: BRISTOL-MYERS SQUIBB COMPANY
  Company Number: EU-BRISTOL-MYERS SQUIBB COMPANY-2025-120679

PATIENT
  Age: 67 Year
  Sex: Male

DRUGS (3)
  1. NELVUTAMIG [Suspect]
     Active Substance: NELVUTAMIG
     Indication: Malignant melanoma
     Route: 042
     Dates: start: 202310
  2. NIVOLUMAB [Suspect]
     Active Substance: NIVOLUMAB
     Indication: Malignant melanoma
     Route: 042
     Dates: start: 202310
  3. NIVOLUMAB [Suspect]
     Active Substance: NIVOLUMAB
     Dosage: MONOTHERAPY
     Route: 042
     Dates: start: 202401, end: 202501

REACTIONS (3)
  - Immune-mediated nephritis [Unknown]
  - Pemphigoid [Unknown]
  - Uveitis [Unknown]
